FAERS Safety Report 21660699 (Version 1)
Quarter: 2022Q4

REPORT INFORMATION
  Report Type: Spontaneous
  Country: CN (occurrence: CN)
  Receive Date: 20221130
  Receipt Date: 20221130
  Transmission Date: 20230113
  Serious: Yes (Other)
  Sender: FDA-Public Use
  Company Number: CN-UCBSA-2022066918

PATIENT
  Age: 22 Year
  Sex: Female

DRUGS (2)
  1. KEPPRA [Suspect]
     Active Substance: LEVETIRACETAM
     Indication: Generalised tonic-clonic seizure
     Dosage: 1500 MILLIGRAM PER DAY
     Dates: start: 2020
  2. LAMOTRIGINE [Suspect]
     Active Substance: LAMOTRIGINE
     Indication: Generalised tonic-clonic seizure
     Dosage: 200 MILLIGRAM PER DAY
     Dates: start: 2020

REACTIONS (14)
  - Generalised tonic-clonic seizure [Recovering/Resolving]
  - Mental impairment [Unknown]
  - Demyelinating polyneuropathy [Unknown]
  - Myoclonic epilepsy [Recovering/Resolving]
  - Nystagmus [Unknown]
  - Dysarthria [Unknown]
  - Ataxia [Unknown]
  - Hypotonia [Unknown]
  - Hyperreflexia [Unknown]
  - Foot deformity [Unknown]
  - MELAS syndrome [Unknown]
  - Cerebral ataxia [Unknown]
  - Krabbe^s disease [Unknown]
  - Nervous system disorder [Unknown]
